FAERS Safety Report 4445789-0 (Version None)
Quarter: 2004Q3

REPORT INFORMATION
  Report Type: 
  Country: None (occurrence: None)
  Receive Date: 20040908
  Receipt Date: 20040908
  Transmission Date: 20050211
  Serious: Yes (Other)
  Sender: FDA-Public Use
  Company Number: None

PATIENT
  Age: 45 Year
  Sex: Female

DRUGS (2)
  1. KLONOPIN [Suspect]
  2. CLONAZEPAM [Suspect]

REACTIONS (1)
  - DRUG INEFFECTIVE [None]
